FAERS Safety Report 20514854 (Version 5)
Quarter: 2022Q4

REPORT INFORMATION
  Report Type: Spontaneous
  Country: US (occurrence: US)
  Receive Date: 20220224
  Receipt Date: 20221025
  Transmission Date: 20230113
  Serious: Yes (Hospitalization, Other)
  Sender: FDA-Public Use
  Company Number: US-SA-SAC20220218001103

PATIENT
  Age: 60 Year
  Sex: Male
  Weight: 58.9 kg

DRUGS (29)
  1. FABRAZYME [Suspect]
     Active Substance: AGALSIDASE BETA
     Indication: Fabry^s disease
     Dosage: 60 MG, QOW
     Route: 042
     Dates: start: 20210811
  2. FABRAZYME [Suspect]
     Active Substance: AGALSIDASE BETA
     Dosage: 600 MG, QOW
     Route: 042
     Dates: start: 20211108
  3. HEPARIN [Concomitant]
     Active Substance: HEPARIN SODIUM
     Dosage: UNK
  4. SODIUM CHLORIDE [Concomitant]
     Active Substance: SODIUM CHLORIDE
     Dosage: UNK
  5. SODIUM CHLORIDE [Concomitant]
     Active Substance: SODIUM CHLORIDE
     Route: 065
  6. EPINEPHRINE [Concomitant]
     Active Substance: EPINEPHRINE
     Dosage: UNK
  7. EPINEPHRINE [Concomitant]
     Active Substance: EPINEPHRINE
     Dosage: 25MG
     Route: 065
  8. VITAMIN D3 [Concomitant]
     Active Substance: CHOLECALCIFEROL
     Dosage: UNK
  9. VITAMIN D3 [Concomitant]
     Active Substance: CHOLECALCIFEROL
     Route: 065
  10. VITAMIN B12 [Concomitant]
     Active Substance: CYANOCOBALAMIN
     Dosage: UNK
  11. SODIUM BICARBONATE [Concomitant]
     Active Substance: SODIUM BICARBONATE
     Dosage: UNK
  12. SODIUM BICARBONATE [Concomitant]
     Active Substance: SODIUM BICARBONATE
     Route: 065
  13. LOKELMA [Concomitant]
     Active Substance: SODIUM ZIRCONIUM CYCLOSILICATE
     Dosage: UNK
  14. LOKELMA [Concomitant]
     Active Substance: SODIUM ZIRCONIUM CYCLOSILICATE
     Route: 065
  15. ALLOPURINOL [Concomitant]
     Active Substance: ALLOPURINOL
     Dosage: UNK
  16. ALLOPURINOL [Concomitant]
     Active Substance: ALLOPURINOL
     Route: 065
  17. ARANESP [Concomitant]
     Active Substance: DARBEPOETIN ALFA
     Dosage: UNK
  18. ARANESP [Concomitant]
     Active Substance: DARBEPOETIN ALFA
     Route: 065
  19. ACETAMINOPHEN [Concomitant]
     Active Substance: ACETAMINOPHEN
     Dosage: UNK
  20. ACETAMINOPHEN [Concomitant]
     Active Substance: ACETAMINOPHEN
     Route: 065
  21. STERILE WATER [Concomitant]
     Active Substance: WATER
     Route: 065
  22. VITAMIN B [Concomitant]
     Active Substance: VITAMIN B
     Route: 065
  23. ENALAPRIL MALEATE [Concomitant]
     Active Substance: ENALAPRIL MALEATE
     Route: 065
  24. BENADRYL [Concomitant]
     Active Substance: DIPHENHYDRAMINE HYDROCHLORIDE
     Route: 065
  25. SODIUM CHLORIDE [Concomitant]
     Active Substance: SODIUM CHLORIDE
  26. SOLU-MEDROL [Concomitant]
     Active Substance: METHYLPREDNISOLONE SODIUM SUCCINATE
     Route: 065
  27. STERILE WATER [Concomitant]
     Active Substance: WATER
  28. MEDROL [Concomitant]
     Active Substance: METHYLPREDNISOLONE
  29. VITAMIN B [Concomitant]
     Active Substance: VITAMIN B

REACTIONS (10)
  - Renal failure [Unknown]
  - Back pain [Unknown]
  - Infection [Unknown]
  - Thinking abnormal [Unknown]
  - Skin abrasion [Unknown]
  - Fall [Unknown]
  - Chills [Recovered/Resolved]
  - Feeling cold [Recovered/Resolved]
  - Pain [Unknown]
  - Product preparation issue [Unknown]

NARRATIVE: CASE EVENT DATE: 20220101
